FAERS Safety Report 5956934-X (Version None)
Quarter: 2008Q4

REPORT INFORMATION
  Report Type: 
  Country: None (occurrence: None)
  Receive Date: 20081118
  Receipt Date: 20081110
  Transmission Date: 20090506
  Serious: Yes (Other)
  Sender: FDA-Public Use
  Company Number: SE-ASTRAZENECA-2008SE05222

PATIENT
  Age: 79 Year
  Sex: Female

DRUGS (8)
  1. ATACAND [Suspect]
     Indication: ESSENTIAL HYPERTENSION
     Route: 048
  2. ATACAND [Suspect]
     Route: 048
  3. OMEPRAZOL ABCUR [Concomitant]
  4. MOVICOL [Concomitant]
  5. METOPROLOL SANDOZ [Concomitant]
  6. ORALOVITE [Concomitant]
  7. DUROFERON [Concomitant]
  8. FENANTOIN [Concomitant]

REACTIONS (1)
  - HYPOTENSION [None]
